FAERS Safety Report 17817228 (Version 2)
Quarter: 2020Q3

REPORT INFORMATION
  Report Type: Spontaneous
  Country: US (occurrence: US)
  Receive Date: 20200522
  Receipt Date: 20200701
  Transmission Date: 20201102
  Serious: No
  Sender: FDA-Public Use
  Company Number: US-BAYER-2020-089137

PATIENT
  Age: 86 Year
  Sex: Male

DRUGS (1)
  1. MIRALAX [Suspect]
     Active Substance: POLYETHYLENE GLYCOL 3350
     Indication: GASTROINTESTINAL DISORDER
     Dosage: UNK
     Route: 048
     Dates: start: 202005

REACTIONS (5)
  - Suspected product contamination [None]
  - Abdominal pain upper [Unknown]
  - Product physical issue [None]
  - Suspected product tampering [None]
  - Product container seal issue [None]
